FAERS Safety Report 25998152 (Version 1)
Quarter: 2025Q4

REPORT INFORMATION
  Report Type: Spontaneous
  Country: CN (occurrence: CN)
  Receive Date: 20251105
  Receipt Date: 20251105
  Transmission Date: 20260118
  Serious: Yes (Other)
  Sender: BEIGENE
  Company Number: CN-BEIGENE-BGN-2025-018822

PATIENT
  Age: 68 Year
  Weight: 51 kg

DRUGS (2)
  1. TISLELIZUMAB [Suspect]
     Active Substance: TISLELIZUMAB
     Indication: Oropharyngeal cancer
     Dosage: 200 MILLIGRAM
  2. SODIUM CHLORIDE [Concomitant]
     Active Substance: SODIUM CHLORIDE
     Indication: Vehicle solution use
     Dosage: 100 MILLILITER

REACTIONS (9)
  - Hyperhidrosis [Recovered/Resolved]
  - Flushing [Recovering/Resolving]
  - Sputum increased [Recovering/Resolving]
  - Dyspnoea [Recovering/Resolving]
  - Rash [Recovering/Resolving]
  - Heart rate increased [Recovering/Resolving]
  - Blood pressure increased [Recovered/Resolved]
  - Breath sounds abnormal [Unknown]
  - Oxygen saturation decreased [Unknown]
